FAERS Safety Report 20346315 (Version 1)
Quarter: 2022Q1

REPORT INFORMATION
  Report Type: Spontaneous
  Country: JP (occurrence: JP)
  Receive Date: 20220118
  Receipt Date: 20220118
  Transmission Date: 20220424
  Serious: Yes (Death, Other)
  Sender: FDA-Public Use
  Company Number: JP-PFIZER INC-202200039907

PATIENT
  Age: 66 Year
  Sex: Male
  Weight: 63 kg

DRUGS (7)
  1. METHYLPREDNISOLONE [Suspect]
     Active Substance: METHYLPREDNISOLONE
     Indication: Inflammation
     Dosage: 1000 MG, DAILY (E-DAY 33-37 AND E-DAY 54-56)
  2. METHYLPREDNISOLONE [Suspect]
     Active Substance: METHYLPREDNISOLONE
     Indication: COVID-19
  3. PROPOFOL [Suspect]
     Active Substance: PROPOFOL
     Indication: Sedation
  4. PROPOFOL [Suspect]
     Active Substance: PROPOFOL
     Indication: COVID-19
  5. FAVIPIRAVIR [Suspect]
     Active Substance: FAVIPIRAVIR
     Indication: COVID-19
     Dosage: UNK
  6. HYDROXYCHLOROQUINE [Suspect]
     Active Substance: HYDROXYCHLOROQUINE
     Indication: COVID-19
     Dosage: UNK
  7. TOCILIZUMAB [Suspect]
     Active Substance: TOCILIZUMAB
     Indication: COVID-19
     Dosage: UNK

REACTIONS (4)
  - Infectious pleural effusion [Fatal]
  - Sepsis [Fatal]
  - Pneumothorax [Unknown]
  - Off label use [Unknown]
